FAERS Safety Report 4981894-8 (Version None)
Quarter: 2006Q2

REPORT INFORMATION
  Report Type: 
  Country: None (occurrence: None)
  Receive Date: 20060425
  Receipt Date: 20060414
  Transmission Date: 20061013
  Serious: Yes (Congenital Anomaly)
  Sender: FDA-Public Use
  Company Number: US-JNJFOC-20060302309

PATIENT

DRUGS (1)
  1. REMICADE [Suspect]
     Indication: CROHN'S DISEASE
     Dosage: LAST DOSE RECEIVED IN SPRING OF 2005

REACTIONS (2)
  - PREMATURE BABY [None]
  - TALIPES [None]
